FAERS Safety Report 15686184 (Version 1)
Quarter: 2018Q4

REPORT INFORMATION
  Report Type: Spontaneous
  Country: US (occurrence: US)
  Receive Date: 20181121
  Receipt Date: 20181121
  Transmission Date: 20190205
  Serious: Yes (Life-Threatening, Hospitalization, Disabling)
  Sender: FDA-Public Use
  Company Number: None

PATIENT
  Age: 32 Year
  Sex: Male
  Weight: 90.72 kg

DRUGS (8)
  1. AMOX-CLAV 500-125MG [Suspect]
     Active Substance: AMOXICILLIN\CLAVULANATE POTASSIUM
     Indication: TONGUE MOVEMENT DISTURBANCE
     Dosage: ?          QUANTITY:2 PILLS;OTHER ROUTE:INJECTION, THEN PILLS.?
     Dates: start: 20090909, end: 20181101
  2. VITAMIN D [Concomitant]
     Active Substance: CHOLECALCIFEROL
  3. VITAMIN B12 [Concomitant]
     Active Substance: CYANOCOBALAMIN
  4. VITAMIN C [Concomitant]
     Active Substance: ASCORBIC ACID
  5. AMOX-CLAV 500-125MG [Suspect]
     Active Substance: AMOXICILLIN\CLAVULANATE POTASSIUM
     Indication: PAIN IN EXTREMITY
     Dosage: ?          QUANTITY:2 PILLS;OTHER ROUTE:INJECTION, THEN PILLS.?
     Dates: start: 20090909, end: 20181101
  6. TRAZODONE [Suspect]
     Active Substance: TRAZODONE HYDROCHLORIDE
     Dosage: ?          QUANTITY:2;?
  7. VITAMIN B1 [Concomitant]
     Active Substance: THIAMINE HYDROCHLORIDE
  8. VITAMIN A [Concomitant]
     Active Substance: VITAMIN A

REACTIONS (5)
  - Injection site pain [None]
  - Tongue movement disturbance [None]
  - Headache [None]
  - Post procedural complication [None]
  - Muscle tightness [None]

NARRATIVE: CASE EVENT DATE: 20041104
